FAERS Safety Report 7076891-5 (Version None)
Quarter: 2010Q4

REPORT INFORMATION
  Report Type: 
  Country: None (occurrence: None)
  Receive Date: 20101029
  Receipt Date: 20101029
  Transmission Date: 20110411
  Serious: Yes (Hospitalization)
  Sender: FDA-Public Use
  Company Number: None

PATIENT
  Age: 67 Year
  Sex: Female
  Weight: 72.5755 kg

DRUGS (1)
  1. ROPIVICAINE 0.2% UNKNOWN [Suspect]
     Indication: ANAESTHESIA
     Dosage: 750 MG TITRATED IV
     Route: 042
     Dates: start: 20100208, end: 20100208

REACTIONS (1)
  - DYSKINESIA [None]
